FAERS Safety Report 7498032-2 (Version None)
Quarter: 2011Q2

REPORT INFORMATION
  Report Type: 
  Country: None (occurrence: None)
  Receive Date: 20110524
  Receipt Date: 20110511
  Transmission Date: 20111010
  Serious: No
  Sender: FDA-Public Use
  Company Number: US-BIOGENIDEC-2011BI017978

PATIENT
  Sex: Female

DRUGS (1)
  1. TYSABRI [Suspect]
     Indication: MULTIPLE SCLEROSIS
     Route: 042
     Dates: start: 20091221

REACTIONS (9)
  - HEMIPARESIS [None]
  - PERONEAL NERVE PALSY [None]
  - INFECTION [None]
  - GENERAL SYMPTOM [None]
  - IMMUNE SYSTEM DISORDER [None]
  - LUNG INFECTION [None]
  - SINUSITIS [None]
  - BRONCHITIS [None]
  - STRESS [None]
